FAERS Safety Report 6687484-3 (Version None)
Quarter: 2010Q2

REPORT INFORMATION
  Report Type: 
  Country: None (occurrence: None)
  Receive Date: 20100416
  Receipt Date: 20100416
  Transmission Date: 20101027
  Serious: Yes (Disabling)
  Sender: FDA-Public Use
  Company Number: None

PATIENT
  Sex: Male
  Weight: 54.4316 kg

DRUGS (1)
  1. HALDOL [Suspect]
     Indication: SCHIZOPHRENIA
     Dosage: 75 MG/EVERY 2 WE EVERY 2 WEEKS
     Dates: start: 20090319

REACTIONS (2)
  - AKATHISIA [None]
  - TARDIVE DYSKINESIA [None]
